FAERS Safety Report 6178840-0 (Version None)
Quarter: 2009Q2

REPORT INFORMATION
  Report Type: 
  Country: None (occurrence: None)
  Receive Date: 20090504
  Receipt Date: 20090423
  Transmission Date: 20091009
  Serious: Yes (Other)
  Sender: FDA-Public Use
  Company Number: IT-BAXTER-2009BH007345

PATIENT
  Age: 6 Year
  Sex: Female

DRUGS (5)
  1. MESNA [Suspect]
     Indication: EWING'S SARCOMA
     Route: 042
  2. IFOSFAMIDE [Suspect]
     Indication: EWING'S SARCOMA
     Route: 042
  3. VINCRISTINE SULFATE [Suspect]
     Indication: EWING'S SARCOMA
     Route: 042
  4. ACTINOMYCIN D [Suspect]
     Indication: EWING'S SARCOMA
     Route: 042
  5. DOXORUBICIN HCL [Suspect]
     Indication: EWING'S SARCOMA
     Route: 042

REACTIONS (1)
  - CONVULSION [None]
